FAERS Safety Report 9238156 (Version 2)
Quarter: 2013Q2

REPORT INFORMATION
  Report Type: Spontaneous
  Country: US (occurrence: None)
  Receive Date: 20130415
  Receipt Date: 20130503
  Transmission Date: 20140414
  Serious: Yes (Disabling, Other)
  Sender: FDA-Public Use
  Company Number: 1304-463

PATIENT
  Age: 83 Year
  Sex: Female

DRUGS (3)
  1. EYLEA [Suspect]
     Indication: MACULAR DEGENERATION
     Dosage: 2 MG, 1 IN 4 WK
     Dates: start: 201209
  2. PRILOSEC [Concomitant]
  3. NORVASC (AMLODIPINE BESILATE) [Concomitant]

REACTIONS (2)
  - Uveitis [None]
  - Visual acuity reduced [None]
